FAERS Safety Report 12170429 (Version 2)
Quarter: 2016Q2

REPORT INFORMATION
  Report Type: Report from Study
  Country: US (occurrence: US)
  Receive Date: 20160311
  Receipt Date: 20160420
  Transmission Date: 20160815
  Serious: Yes (Disabling, Other)
  Sender: FDA-Public Use
  Company Number: US-GILEAD-2016-0202404

PATIENT
  Age: 46 Year
  Sex: Male
  Weight: 87.53 kg

DRUGS (17)
  1. LYRICA [Concomitant]
     Active Substance: PREGABALIN
  2. CALCIUM CARBONATE AND VITAMIN D [Concomitant]
  3. MULTIPLE VITAMINS [Concomitant]
     Active Substance: VITAMINS
  4. PREDNISONE. [Concomitant]
     Active Substance: PREDNISONE
  5. BACTROBAN [Concomitant]
     Active Substance: MUPIROCIN\MUPIROCIN CALCIUM
  6. PRAVASTATIN SODIUM. [Concomitant]
     Active Substance: PRAVASTATIN SODIUM
  7. AMBRISENTAN [Suspect]
     Active Substance: AMBRISENTAN
     Indication: PRODUCT USED FOR UNKNOWN INDICATION
     Dosage: 5 MG, UNK
     Route: 065
  8. NABUMETONE. [Concomitant]
     Active Substance: NABUMETONE
  9. VICODIN [Concomitant]
     Active Substance: ACETAMINOPHEN\HYDROCODONE BITARTRATE
  10. FAMOTIDINE. [Concomitant]
     Active Substance: FAMOTIDINE
  11. INSPRA [Concomitant]
     Active Substance: EPLERENONE
  12. ALTACE [Concomitant]
     Active Substance: RAMIPRIL
  13. NEXIUM [Concomitant]
     Active Substance: ESOMEPRAZOLE MAGNESIUM
  14. REVATIO [Concomitant]
     Active Substance: SILDENAFIL CITRATE
  15. COREG [Concomitant]
     Active Substance: CARVEDILOL
  16. PROAIR HFA [Concomitant]
     Active Substance: ALBUTEROL SULFATE
  17. OXYGEN. [Concomitant]
     Active Substance: OXYGEN

REACTIONS (1)
  - Pulmonary fibrosis [Unknown]
